FAERS Safety Report 5165413-1 (Version None)
Quarter: 2006Q4

REPORT INFORMATION
  Report Type: 
  Country: None (occurrence: None)
  Receive Date: 20061127
  Receipt Date: 20061110
  Transmission Date: 20070319
  Serious: Yes (Hospitalization)
  Sender: FDA-Public Use
  Company Number: 36486

PATIENT
  Age: 67 Year
  Sex: Male

DRUGS (1)
  1. BRINZOLAMIDE 1% SUSPENSION [Suspect]
     Indication: OPEN ANGLE GLAUCOMA
     Dosage: OPHT
     Route: 047
     Dates: start: 20051130, end: 20051206

REACTIONS (1)
  - CEREBROVASCULAR ACCIDENT [None]
